FAERS Safety Report 4287923-1 (Version None)
Quarter: 2004Q1

REPORT INFORMATION
  Report Type: 
  Country: None (occurrence: None)
  Receive Date: 20040209
  Receipt Date: 20031029
  Transmission Date: 20041129
  Serious: No
  Sender: FDA-Public Use
  Company Number: US-GLAXOSMITHKLINE-A0432125A

PATIENT
  Age: 56 Year
  Sex: Male

DRUGS (6)
  1. PAXIL CR [Suspect]
     Dosage: 50MG AT NIGHT
     Route: 048
     Dates: start: 20020101
  2. PAXIL [Suspect]
     Dosage: 50MG PER DAY
     Route: 048
     Dates: start: 19950101, end: 20020101
  3. ZESTORETIC [Concomitant]
  4. LIPITOR [Concomitant]
  5. MULTIVITAMIN [Concomitant]
  6. TPN [Concomitant]

REACTIONS (5)
  - DRUG INEFFECTIVE [None]
  - SEXUAL DYSFUNCTION [None]
  - SOMNOLENCE [None]
  - WEIGHT DECREASED [None]
  - WEIGHT INCREASED [None]
